FAERS Safety Report 20689982 (Version 1)
Quarter: 2022Q2

REPORT INFORMATION
  Report Type: Spontaneous
  Country: CN (occurrence: CN)
  Receive Date: 20220408
  Receipt Date: 20220408
  Transmission Date: 20220721
  Serious: Yes (Hospitalization)
  Sender: FDA-Public Use
  Company Number: CN-PFIZER INC-202200512307

PATIENT
  Age: 16 Year
  Sex: Male

DRUGS (5)
  1. CYTARABINE [Suspect]
     Active Substance: CYTARABINE
     Indication: Acute myeloid leukaemia
     Dosage: 50 MG, 1X/DAY
     Route: 037
     Dates: start: 20220224, end: 20220224
  2. CYTARABINE [Suspect]
     Active Substance: CYTARABINE
     Dosage: 5 G, 2X/DAY
     Route: 041
     Dates: start: 20220225, end: 20220225
  3. CYTARABINE [Suspect]
     Active Substance: CYTARABINE
     Dosage: 3 G, 2X/DAY
     Route: 041
     Dates: start: 20220226, end: 20220226
  4. CYTARABINE [Suspect]
     Active Substance: CYTARABINE
     Dosage: 2 G, 2X/DAY
     Route: 041
     Dates: start: 20220227, end: 20220227
  5. METHOTREXATE [Suspect]
     Active Substance: METHOTREXATE
     Indication: Acute myeloid leukaemia
     Dosage: 10 MG, 1X/DAY
     Route: 037
     Dates: start: 20220224, end: 20220224

REACTIONS (2)
  - Platelet count decreased [Recovering/Resolving]
  - Granulocyte count decreased [Unknown]

NARRATIVE: CASE EVENT DATE: 20220302
